FAERS Safety Report 6142807-9 (Version None)
Quarter: 2009Q2

REPORT INFORMATION
  Report Type: 
  Country: None (occurrence: None)
  Receive Date: 20090403
  Receipt Date: 20090326
  Transmission Date: 20091009
  Serious: Yes (Hospitalization)
  Sender: FDA-Public Use
  Company Number: US-B.I. PHARMACEUTICALS,INC./RIDGEFIELD-2009-BP-03019BP

PATIENT
  Sex: Female

DRUGS (11)
  1. SPIRIVA [Suspect]
     Indication: CHRONIC OBSTRUCTIVE PULMONARY DISEASE
     Dosage: 18MCG
     Route: 055
     Dates: start: 20080401
  2. AZMACORT [Concomitant]
     Indication: ASTHMA
     Route: 055
  3. PREMARIN [Concomitant]
     Indication: MENOPAUSE
     Dosage: 1.25MG
     Route: 048
  4. CITALOPRAM HYDROBROMIDE [Concomitant]
     Indication: DEPRESSION
     Dosage: 20MG
     Route: 048
  5. AVALIDE [Concomitant]
     Indication: HYPERTENSION
     Route: 048
  6. PROVENTIL [Concomitant]
     Indication: CHRONIC OBSTRUCTIVE PULMONARY DISEASE
     Route: 055
  7. PRIMIDONE [Concomitant]
     Indication: CONVULSION
     Route: 048
  8. THEOPHYLLINE [Concomitant]
     Indication: CHRONIC OBSTRUCTIVE PULMONARY DISEASE
     Dosage: 600MG
  9. LEVOTHYROXINE SODIUM [Concomitant]
     Indication: HYPOTHYROIDISM
     Dosage: 6.12MG
     Route: 048
  10. TYLENOL [Concomitant]
     Indication: ARTHRITIS
  11. TYLENOL [Concomitant]
     Indication: FIBROMYALGIA

REACTIONS (4)
  - ABDOMINAL ADHESIONS [None]
  - FALL [None]
  - SMALL INTESTINAL OBSTRUCTION [None]
  - WRIST FRACTURE [None]
